FAERS Safety Report 21044596 (Version 4)
Quarter: 2023Q1

REPORT INFORMATION
  Report Type: Spontaneous
  Country: US (occurrence: US)
  Receive Date: 20220705
  Receipt Date: 20230113
  Transmission Date: 20230418
  Serious: No
  Sender: FDA-Public Use
  Company Number: US-BRISTOL-MYERS SQUIBB COMPANY-2022-068650

PATIENT
  Age: 83 Year
  Sex: Female
  Weight: 58 kg

DRUGS (2)
  1. REVLIMID [Suspect]
     Active Substance: LENALIDOMIDE
     Indication: Plasma cell myeloma
     Dosage: DAILY X 21 DAYS EVERY 28 DAYS, 21D ON 7D OFF
     Route: 048
  2. REVLIMID [Suspect]
     Active Substance: LENALIDOMIDE
     Indication: Plasma cell myeloma
     Dosage: FREQ - DAILY FOR 21DAYS
     Route: 048
     Dates: start: 20220202

REACTIONS (5)
  - Constipation [Unknown]
  - Oedema [Unknown]
  - Arthralgia [Unknown]
  - Chromaturia [Not Recovered/Not Resolved]
  - Hypoglycaemia [Unknown]
